FAERS Safety Report 10400683 (Version 1)
Quarter: 2014Q3

REPORT INFORMATION
  Report Type: Spontaneous
  Country: US (occurrence: US)
  Receive Date: 20140821
  Receipt Date: 20140821
  Transmission Date: 20150326
  Serious: No
  Sender: FDA-Public Use
  Company Number: US-ASTRAZENECA-2014SE07004

PATIENT
  Age: 76 Year
  Sex: Female
  Weight: 72.6 kg

DRUGS (15)
  1. BREO ELLIPTA [Concomitant]
     Active Substance: FLUTICASONE FUROATE\VILANTEROL TRIFENATATE
     Indication: CHRONIC OBSTRUCTIVE PULMONARY DISEASE
     Dates: end: 20140119
  2. SERAVENT [Concomitant]
     Indication: CHRONIC OBSTRUCTIVE PULMONARY DISEASE
     Dates: end: 20140106
  3. SPIRIVA [Concomitant]
     Active Substance: TIOTROPIUM BROMIDE MONOHYDRATE
     Indication: DYSPNOEA
     Dosage: 2 PUFFS, DAILY
     Dates: start: 2004
  4. PROVENTAL HFA [Concomitant]
     Indication: INHALATION THERAPY
     Dosage: AS REQUIRED
  5. OCUVITE VITAMIN [Concomitant]
     Indication: EYE DISORDER
     Dosage: DAILY
  6. METHOTREXATE [Concomitant]
     Active Substance: METHOTREXATE
     Indication: RHEUMATOID ARTHRITIS
  7. LEUCOVORIN [Concomitant]
     Active Substance: LEUCOVORIN
     Indication: DRUG THERAPY
  8. SYNTHROID [Concomitant]
     Active Substance: LEVOTHYROXINE SODIUM
     Indication: HYPOTHYROIDISM
  9. TYLENOL [Concomitant]
     Active Substance: ACETAMINOPHEN
     Dosage: AS REQUIRED
  10. TYCLOPIDINE [Concomitant]
     Indication: CEREBROVASCULAR ACCIDENT
  11. SERAVENT [Concomitant]
     Indication: CHRONIC OBSTRUCTIVE PULMONARY DISEASE
     Dates: start: 20140123, end: 20140127
  12. LEFLUNDMIDE [Concomitant]
     Indication: RHEUMATOID ARTHRITIS
     Dates: start: 201310
  13. VITAMIN D3 [Concomitant]
     Active Substance: CHOLECALCIFEROL
     Indication: SUPPLEMENTATION THERAPY
  14. SYMBICORT [Suspect]
     Active Substance: BUDESONIDE\FORMOTEROL FUMARATE DIHYDRATE
     Indication: CHRONIC OBSTRUCTIVE PULMONARY DISEASE
     Dosage: 2 PUFFS, TWO TIMES A DAY
     Route: 055
     Dates: start: 20140127
  15. HYDROXYCHLORIQUINE [Concomitant]
     Indication: RHEUMATOID ARTHRITIS

REACTIONS (2)
  - Dyspnoea exertional [Unknown]
  - Vomiting [Unknown]

NARRATIVE: CASE EVENT DATE: 20140128
